FAERS Safety Report 7352295-2 (Version None)
Quarter: 2011Q1

REPORT INFORMATION
  Report Type: 
  Country: None (occurrence: None)
  Receive Date: 20110315
  Receipt Date: 20100830
  Transmission Date: 20110831
  Serious: Yes (Hospitalization, Other)
  Sender: FDA-Public Use
  Company Number: US-BAYER-201023243NA

PATIENT
  Sex: Female
  Weight: 104.55 kg

DRUGS (10)
  1. LISINOPRIL [Concomitant]
     Dates: start: 20060101
  2. IBUPROFEN [Concomitant]
     Dates: start: 19800101
  3. CYMBALTA [Concomitant]
     Dosage: 60 MG (DAILY DOSE), QD,
  4. PROPRANOLOL [Concomitant]
     Dosage: 40 MG (DAILY DOSE), BID,
  5. YAZ [Suspect]
     Route: 048
     Dates: start: 20070501, end: 20070601
  6. METFORMIN [Concomitant]
     Indication: METABOLIC SYNDROME
  7. YASMIN [Suspect]
     Indication: CONTRACEPTION
     Dates: start: 20070531, end: 20070608
  8. SODIUM BICARBONATE [Concomitant]
     Dates: start: 20070601
  9. THYROXIN [Concomitant]
     Dosage: 75 ?G (DAILY DOSE), QD,
     Dates: start: 20030101
  10. YASMIN [Suspect]
     Indication: MENOPAUSAL SYMPTOMS

REACTIONS (10)
  - DYSPNOEA [None]
  - PULMONARY EMBOLISM [None]
  - DEEP VEIN THROMBOSIS [None]
  - NAUSEA [None]
  - DIZZINESS [None]
  - TACHYPNOEA [None]
  - PAIN IN EXTREMITY [None]
  - VOMITING [None]
  - ANXIETY [None]
  - PALPITATIONS [None]
